FAERS Safety Report 16141266 (Version 2)
Quarter: 2019Q2

REPORT INFORMATION
  Report Type: Spontaneous
  Country: US (occurrence: US)
  Receive Date: 20190401
  Receipt Date: 20190621
  Transmission Date: 20190711
  Serious: Yes (Hospitalization)
  Sender: FDA-Public Use
  Company Number: US-PFIZER INC-2019130635

PATIENT
  Age: 95 Year
  Sex: Male

DRUGS (2)
  1. BACTRIM [Suspect]
     Active Substance: SULFAMETHOXAZOLE\TRIMETHOPRIM
     Dosage: UNK
  2. VANCOMYCIN HCL [Suspect]
     Active Substance: VANCOMYCIN HYDROCHLORIDE
     Indication: STAPHYLOCOCCAL INFECTION
     Dosage: UNK UNK, 1X/DAY (VIAL TAKEN ONCE A DAY FOR 4-5 WEEKS AFTER LEAVING HOSPITAL)
     Route: 042

REACTIONS (2)
  - Drug hypersensitivity [Unknown]
  - Renal disorder [Unknown]

NARRATIVE: CASE EVENT DATE: 201809
